FAERS Safety Report 15659607 (Version 1)
Quarter: 2018Q4

REPORT INFORMATION
  Report Type: Spontaneous
  Country: CA (occurrence: CA)
  Receive Date: 20181127
  Receipt Date: 20181127
  Transmission Date: 20190205
  Serious: Yes (Life-Threatening, Hospitalization, Congenital Anomaly, Other)
  Sender: FDA-Public Use
  Company Number: CA-TEVA-2018-CA-979875

PATIENT
  Sex: Female

DRUGS (3)
  1. PREDNISONE. [Concomitant]
     Active Substance: PREDNISONE
     Indication: NEUROMYELITIS OPTICA SPECTRUM DISORDER
     Route: 064
  2. SPIRONOLACTONE. [Concomitant]
     Active Substance: SPIRONOLACTONE
     Indication: NEUROMYELITIS OPTICA SPECTRUM DISORDER
     Route: 064
  3. GABAPENTIN. [Suspect]
     Active Substance: GABAPENTIN
     Indication: NEUROMYELITIS OPTICA SPECTRUM DISORDER
     Route: 064

REACTIONS (6)
  - Convulsion neonatal [Unknown]
  - Foetal exposure during pregnancy [Unknown]
  - Syndactyly [Unknown]
  - Congenital hand malformation [Unknown]
  - Aplasia [Unknown]
  - Neonatal respiratory failure [Unknown]
